FAERS Safety Report 15747135 (Version 3)
Quarter: 2019Q1

REPORT INFORMATION
  Report Type: Spontaneous
  Country: PT (occurrence: PT)
  Receive Date: 20181220
  Receipt Date: 20190104
  Transmission Date: 20190417
  Serious: Yes (Other)
  Sender: FDA-Public Use
  Company Number: PT-JNJFOC-20181219517

PATIENT
  Age: 16 Year
  Sex: Female

DRUGS (1)
  1. INFLIXIMAB, RECOMBINANT [Suspect]
     Active Substance: INFLIXIMAB
     Indication: CROHN^S DISEASE
     Dosage: EVERY 0, 2 , 6 AND THEN 8 WEEKS
     Route: 042
     Dates: start: 2008

REACTIONS (1)
  - Acute HIV infection [Unknown]

NARRATIVE: CASE EVENT DATE: 2015
